FAERS Safety Report 6528186-3 (Version None)
Quarter: 2010Q1

REPORT INFORMATION
  Report Type: 
  Country: None (occurrence: None)
  Receive Date: 20100105
  Receipt Date: 20100105
  Transmission Date: 20100710
  Serious: Yes (Hospitalization)
  Sender: FDA-Public Use
  Company Number: None

PATIENT
  Age: 48 Year
  Sex: Female
  Weight: 91.6266 kg

DRUGS (1)
  1. MACROBID [Suspect]
     Indication: PROPHYLAXIS URINARY TRACT INFECTION
     Dosage: 100 MG DAILY PO
     Route: 048
     Dates: start: 20060401, end: 20090920

REACTIONS (5)
  - DYSPNOEA EXERTIONAL [None]
  - HYPOXIA [None]
  - IMPAIRED WORK ABILITY [None]
  - LIVER DISORDER [None]
  - LUNG DISORDER [None]
